FAERS Safety Report 8818505 (Version 1)
Quarter: 2012Q4

REPORT INFORMATION
  Report Type: 
  Country: DE (occurrence: JP)
  Receive Date: 20121001
  Receipt Date: 20121001
  Transmission Date: 20130627
  Serious: Yes (Other)
  Sender: FDA-Public Use
  Company Number: JP-BRISTOL-MYERS SQUIBB COMPANY-16994584

PATIENT
  Age: 82 Year
  Sex: Male

DRUGS (5)
  1. METGLUCO [Suspect]
     Indication: TYPE 2 DIABETES MELLITUS
     Dosage: 250 mg in the morning and in the evening
     Route: 048
     Dates: start: 201206, end: 201208
  2. SALOBEL [Concomitant]
     Route: 048
  3. NESINA [Concomitant]
     Route: 048
  4. AMLODIPINE [Concomitant]
     Route: 048
  5. REBAMIPIDE [Concomitant]

REACTIONS (4)
  - Liver injury [Recovering/Resolving]
  - Dyspepsia [Recovering/Resolving]
  - Abdominal pain upper [Recovering/Resolving]
  - Nausea [Recovering/Resolving]
